FAERS Safety Report 5520681-9 (Version None)
Quarter: 2007Q4

REPORT INFORMATION
  Report Type: 
  Country: None (occurrence: None)
  Receive Date: 20071119
  Receipt Date: 20071115
  Transmission Date: 20080405
  Serious: Yes (Life-Threatening, Hospitalization, Other)
  Sender: FDA-Public Use
  Company Number: PHEH2007US10405

PATIENT
  Age: 58 Year
  Sex: Male
  Weight: 83.9 kg

DRUGS (7)
  1. ASPIRIN [Concomitant]
  2. TOPROL-XL [Concomitant]
  3. KLONOPIN [Concomitant]
     Indication: RAPID EYE MOVEMENTS SLEEP ABNORMAL
     Dosage: 0.5 MG, QD
     Route: 048
  4. EXJADE [Suspect]
     Indication: IRON OVERLOAD
     Dosage: 1750 MG, QD
     Route: 048
     Dates: start: 20070716, end: 20070720
  5. MUCOMYST [Concomitant]
     Dosage: 600 MG, BID
     Route: 048
  6. MORPHINE [Concomitant]
     Dosage: 2 MG, Q1H, PRN
     Route: 042
  7. VERSED [Concomitant]
     Dosage: 2 MG, Q1H, PRN
     Route: 042

REACTIONS (50)
  - ACIDOSIS [None]
  - ACUTE HEPATIC FAILURE [None]
  - ALANINE AMINOTRANSFERASE INCREASED [None]
  - AMMONIA INCREASED [None]
  - ASPARTATE AMINOTRANSFERASE INCREASED [None]
  - ASTHENIA [None]
  - ATELECTASIS [None]
  - BACTERIA SPUTUM IDENTIFIED [None]
  - BLOOD BICARBONATE INCREASED [None]
  - BLOOD BILIRUBIN INCREASED [None]
  - BLOOD CALCIUM DECREASED [None]
  - BLOOD CHLORIDE INCREASED [None]
  - BLOOD CREATININE INCREASED [None]
  - BLOOD GLUCOSE INCREASED [None]
  - BLOOD POTASSIUM DECREASED [None]
  - BLOOD PRESSURE INCREASED [None]
  - BLOOD SODIUM INCREASED [None]
  - BLOOD UREA INCREASED [None]
  - BONE DISORDER [None]
  - CEREBRAL DISORDER [None]
  - CHEST X-RAY ABNORMAL [None]
  - COMA [None]
  - CONFUSIONAL STATE [None]
  - DIARRHOEA [None]
  - DIASTOLIC DYSFUNCTION [None]
  - DISORIENTATION [None]
  - ECHOCARDIOGRAM ABNORMAL [None]
  - ELECTROENCEPHALOGRAM ABNORMAL [None]
  - FAECES DISCOLOURED [None]
  - GRANULOMA [None]
  - HAEMATEMESIS [None]
  - HAEMATURIA [None]
  - HEPATIC ENCEPHALOPATHY [None]
  - HEPATIC LESION [None]
  - INTERNATIONAL NORMALISED RATIO INCREASED [None]
  - INTUBATION [None]
  - LEFT VENTRICULAR HYPERTROPHY [None]
  - MALAISE [None]
  - MENTAL STATUS CHANGES [None]
  - NAUSEA [None]
  - PLATELET COUNT DECREASED [None]
  - PLEURAL FIBROSIS [None]
  - PULMONARY VALVE INCOMPETENCE [None]
  - SOMNOLENCE [None]
  - STUPOR [None]
  - TRICUSPID VALVE INCOMPETENCE [None]
  - UNRESPONSIVE TO STIMULI [None]
  - URINE ANALYSIS [None]
  - VOMITING [None]
  - WHITE BLOOD CELL COUNT INCREASED [None]
